FAERS Safety Report 11444851 (Version 1)
Quarter: 2015Q3

REPORT INFORMATION
  Report Type: Spontaneous
  Country: IN (occurrence: IN)
  Receive Date: 20150902
  Receipt Date: 20150902
  Transmission Date: 20151125
  Serious: Yes (Death, Other)
  Sender: FDA-Public Use
  Company Number: IN-ELI_LILLY_AND_COMPANY-IN201508008942

PATIENT
  Age: 42 Year
  Sex: Female

DRUGS (3)
  1. ZOLEDRONIC ACID [Concomitant]
     Active Substance: ZOLEDRONIC ACID
     Indication: BONE CANCER
     Dosage: UNK, CYCLICAL
     Route: 065
  2. GEMCITABINE HYDROCHLORIDE. [Suspect]
     Active Substance: GEMCITABINE HYDROCHLORIDE
     Indication: GALLBLADDER CANCER
     Dosage: 900 MG/M2, CYCLICAL
     Route: 065
     Dates: start: 20111229
  3. DOCETAXEL. [Concomitant]
     Active Substance: DOCETAXEL
     Indication: GALLBLADDER CANCER
     Dosage: 100 MG/M2, CYCLICAL
     Route: 065
     Dates: start: 20111229

REACTIONS (3)
  - Malignant neoplasm progression [Fatal]
  - Neutropenia [Unknown]
  - Deep vein thrombosis [Unknown]
